FAERS Safety Report 11116147 (Version 2)
Quarter: 2015Q2

REPORT INFORMATION
  Report Type: Report from Study
  Country: PL (occurrence: PL)
  Receive Date: 20150515
  Receipt Date: 20150604
  Transmission Date: 20150821
  Serious: Yes (Other)
  Sender: FDA-Public Use
  Company Number: PL-ABBVIE-15P-129-1387951-00

PATIENT
  Age: 56 Year
  Sex: Female
  Weight: 69 kg

DRUGS (9)
  1. ABT-333 [Suspect]
     Active Substance: DASABUVIR
     Indication: HEPATITIS C
     Route: 048
     Dates: start: 20141222, end: 20150315
  2. RIBAVIRIN. [Concomitant]
     Active Substance: RIBAVIRIN
     Dosage: TOTAL DAILY DOSE 800MG
     Route: 048
     Dates: start: 20141231, end: 20150108
  3. RIBAVIRIN. [Concomitant]
     Active Substance: RIBAVIRIN
     Dosage: TOTAL DAILY DOSE 1000MG
     Route: 048
     Dates: start: 20150109, end: 20150113
  4. RIBAVIRIN. [Concomitant]
     Active Substance: RIBAVIRIN
     Dosage: TOTAL DAILY DOSE 800MG
     Route: 048
     Dates: start: 20150104, end: 20150104
  5. RIBAVIRIN. [Concomitant]
     Active Substance: RIBAVIRIN
     Dosage: TOTAL DAILY DOSE 800MG
     Route: 048
     Dates: start: 20150114, end: 20150315
  6. RIBAVIRIN. [Concomitant]
     Active Substance: RIBAVIRIN
     Indication: HEPATITIS C
     Dosage: TOTAL DAILY DOSE 1000MG
     Route: 048
     Dates: start: 20141222, end: 20141228
  7. RIBAVIRIN. [Concomitant]
     Active Substance: RIBAVIRIN
     Dosage: TOTAL DAILY DOSE 600MG
     Route: 048
     Dates: start: 20141229, end: 20141230
  8. ABT-450/RITONAVIR/ABT-267 [Suspect]
     Active Substance: OMBITASVIR\PARITAPREVIR\RITONAVIR
     Indication: HEPATITIS C
     Dosage: DAILY DOSE: 25MG/150MG/100MG
     Route: 048
     Dates: start: 20141222, end: 20150315
  9. CEFUROXIM [Concomitant]
     Active Substance: CEFUROXIME
     Indication: UPPER RESPIRATORY TRACT INFECTION
     Route: 048
     Dates: start: 201501, end: 201501

REACTIONS (3)
  - White blood cell count decreased [Recovering/Resolving]
  - Neutrophil count decreased [Recovering/Resolving]
  - Upper respiratory tract infection [Recovered/Resolved]

NARRATIVE: CASE EVENT DATE: 201501
